FAERS Safety Report 9123870 (Version 2)
Quarter: 2014Q2

REPORT INFORMATION
  Report Type: Spontaneous
  Country: US (occurrence: US)
  Receive Date: 20130227
  Receipt Date: 20140626
  Transmission Date: 20141212
  Serious: No
  Sender: FDA-Public Use
  Company Number: US-009507513-1302USA010851

PATIENT
  Age: 18 Year
  Sex: Female
  Weight: 72.56 kg

DRUGS (4)
  1. NEXPLANON [Suspect]
     Indication: CONTRACEPTION
     Dosage: UNK
     Dates: start: 20130220
  2. GARDASIL [Suspect]
     Indication: PROPHYLAXIS
     Dates: start: 20130220, end: 20130220
  3. DIPHTHERIA TOXOID (+) PERTUSSIS ACELLULAR VACCINE (UNSPECIFIED) (+) TE [Concomitant]
     Dosage: UNK
     Dates: start: 20130220
  4. MENACTRA [Concomitant]
     Dosage: UNK
     Dates: start: 20130220

REACTIONS (5)
  - Fear [Recovering/Resolving]
  - Contusion [Recovering/Resolving]
  - Implant site haemorrhage [Recovering/Resolving]
  - Dizziness [Recovering/Resolving]
  - Fatigue [Recovering/Resolving]
